FAERS Safety Report 10058735 (Version 1)
Quarter: 2014Q2

REPORT INFORMATION
  Report Type: Spontaneous
  Country: US (occurrence: US)
  Receive Date: 20140404
  Receipt Date: 20140404
  Transmission Date: 20141212
  Serious: No
  Sender: FDA-Public Use
  Company Number: US-GLAXOSMITHKLINE-A1011350A

PATIENT
  Age: 47 Year
  Sex: Female

DRUGS (2)
  1. ALLI [Suspect]
     Indication: PRODUCT USED FOR UNKNOWN INDICATION
     Dates: start: 20130116, end: 20130206
  2. LISINOPRIL [Suspect]
     Route: 065

REACTIONS (6)
  - Hepatic enzyme increased [Recovering/Resolving]
  - Faeces discoloured [Recovered/Resolved]
  - Steatorrhoea [Recovered/Resolved]
  - Treatment noncompliance [Unknown]
  - Drug interaction [Unknown]
  - Faeces pale [Recovered/Resolved]
